FAERS Safety Report 4417508-5 (Version None)
Quarter: 2004Q2

REPORT INFORMATION
  Report Type: 
  Country: None (occurrence: None)
  Receive Date: 20040625
  Receipt Date: 20040413
  Transmission Date: 20050107
  Serious: Yes (Other)
  Sender: FDA-Public Use
  Company Number: 205884

PATIENT
  Age: 44 Year
  Sex: Male

DRUGS (3)
  1. AVASTIN [Suspect]
     Indication: COLORECTAL CANCER
     Dosage: 460 MG, INTRAVENOUS
     Route: 042
     Dates: start: 20040325
  2. OXALIPLATIN [Suspect]
     Indication: COLORECTAL CANCER
  3. XELODA [Suspect]
     Indication: COLORECTAL CANCER

REACTIONS (1)
  - EMBOLISM [None]
